FAERS Safety Report 20933722 (Version 2)
Quarter: 2022Q3

REPORT INFORMATION
  Report Type: Spontaneous
  Country: CN (occurrence: CN)
  Receive Date: 20220608
  Receipt Date: 20220704
  Transmission Date: 20221026
  Serious: Yes (Death, Other)
  Sender: FDA-Public Use
  Company Number: CN-ABBVIE-22K-035-4424789-00

PATIENT
  Age: 65 Year
  Sex: Female

DRUGS (5)
  1. VENETOCLAX [Suspect]
     Active Substance: VENETOCLAX
     Indication: Acute megakaryocytic leukaemia
     Dosage: DAY 1
     Route: 048
     Dates: start: 202102, end: 202102
  2. VENETOCLAX [Suspect]
     Active Substance: VENETOCLAX
     Dosage: DAY 2
     Route: 048
     Dates: start: 2021, end: 2021
  3. VENETOCLAX [Suspect]
     Active Substance: VENETOCLAX
     Dosage: DAY 3 TO 28
     Route: 048
     Dates: start: 2021, end: 2021
  4. VENETOCLAX [Suspect]
     Active Substance: VENETOCLAX
     Route: 048
     Dates: start: 2021
  5. AZACITIDINE [Concomitant]
     Active Substance: AZACITIDINE
     Indication: Acute megakaryocytic leukaemia
     Dosage: DAY 1 -7
     Dates: start: 2021, end: 2021

REACTIONS (4)
  - Infection [Fatal]
  - Septic shock [Fatal]
  - Respiratory failure [Fatal]
  - Myelosuppression [Unknown]

NARRATIVE: CASE EVENT DATE: 20210101
